FAERS Safety Report 6855192-1 (Version None)
Quarter: 2010Q3

REPORT INFORMATION
  Report Type: 
  Country: None (occurrence: None)
  Receive Date: 20100717
  Receipt Date: 20081125
  Transmission Date: 20110219
  Serious: Yes (Other)
  Sender: FDA-Public Use
  Company Number: US-PFIZER INC-2007108336

PATIENT
  Sex: Female
  Weight: 65 kg

DRUGS (11)
  1. CHANTIX [Suspect]
     Indication: SMOKING CESSATION THERAPY
     Dosage: 1 MG, 2X/DAY
     Route: 048
     Dates: start: 20070210, end: 20070322
  2. NEURONTIN [Concomitant]
     Dosage: UNK
  3. PAROXETINE [Concomitant]
     Dosage: UNK
  4. WELLBUTRIN [Concomitant]
     Dosage: UNK
  5. ZANTAC [Concomitant]
     Dosage: UNK
  6. TEGRETOL [Concomitant]
     Dosage: UNK
  7. MEVACOR [Concomitant]
     Dosage: UNK
  8. FOSAMAX [Concomitant]
     Dosage: UNK
  9. QUININE [Concomitant]
     Dosage: UNK
  10. NORCO [Concomitant]
  11. XALATAN [Concomitant]
     Dosage: UNK
     Route: 047

REACTIONS (3)
  - ATRIAL FIBRILLATION [None]
  - DIZZINESS [None]
  - PALPITATIONS [None]
